FAERS Safety Report 4771643-0 (Version None)
Quarter: 2005Q3

REPORT INFORMATION
  Report Type: 
  Country: None (occurrence: None)
  Receive Date: 20050916
  Receipt Date: 20050905
  Transmission Date: 20060218
  Serious: Yes (Other)
  Sender: FDA-Public Use
  Company Number: PHBS2005NZ13065

PATIENT
  Sex: Female

DRUGS (1)
  1. METHYLPHENIDATE HCL [Suspect]
     Indication: DRUG ABUSER
     Dosage: 200 MG/D
     Route: 048

REACTIONS (2)
  - DRUG ABUSER [None]
  - PARANOIA [None]
